FAERS Safety Report 25059544 (Version 3)
Quarter: 2025Q3

REPORT INFORMATION
  Report Type: Report from Study
  Country: US (occurrence: US)
  Receive Date: 20250310
  Receipt Date: 20250903
  Transmission Date: 20251021
  Serious: Yes (Other)
  Sender: ABBVIE
  Company Number: US-ABBVIE-6163186

PATIENT
  Age: 75 Year
  Sex: Female

DRUGS (2)
  1. RINVOQ [Suspect]
     Active Substance: UPADACITINIB
     Indication: Rheumatoid arthritis
     Route: 048
     Dates: start: 20240629, end: 202502
  2. RINVOQ [Suspect]
     Active Substance: UPADACITINIB
     Indication: Rheumatoid arthritis
     Route: 048
     Dates: start: 2025, end: 202506

REACTIONS (11)
  - Back pain [Not Recovered/Not Resolved]
  - Pruritus [Not Recovered/Not Resolved]
  - Pain in extremity [Recovered/Resolved]
  - Localised infection [Not Recovered/Not Resolved]
  - Infected acrochordon [Not Recovered/Not Resolved]
  - Cyst [Unknown]
  - Ingrown hair [Unknown]
  - Joint warmth [Unknown]
  - Furuncle [Unknown]
  - Dermatitis [Unknown]
  - Papule [Unknown]

NARRATIVE: CASE EVENT DATE: 20250601
